FAERS Safety Report 5608954-2 (Version None)
Quarter: 2008Q1

REPORT INFORMATION
  Report Type: 
  Country: None (occurrence: None)
  Receive Date: 20080129
  Receipt Date: 20080129
  Transmission Date: 20080703
  Serious: Yes (Other)
  Sender: FDA-Public Use
  Company Number: None

PATIENT
  Age: 47 Year
  Sex: Male
  Weight: 90.7194 kg

DRUGS (1)
  1. LEVAQUIN [Suspect]
     Indication: URINARY TRACT INFECTION
     Dosage: 750 MG  ONCE A DAY  PO
     Route: 048
     Dates: start: 20080104, end: 20080111

REACTIONS (7)
  - ARTHRALGIA [None]
  - FEELING ABNORMAL [None]
  - INSOMNIA [None]
  - JOINT SWELLING [None]
  - NIGHTMARE [None]
  - PYREXIA [None]
  - RESTLESSNESS [None]
